FAERS Safety Report 12421727 (Version 1)
Quarter: 2016Q2

REPORT INFORMATION
  Report Type: Report from Study
  Country: BR (occurrence: BR)
  Receive Date: 20160531
  Receipt Date: 20160531
  Transmission Date: 20160815
  Serious: Yes (Other)
  Sender: FDA-Public Use
  Company Number: BR-ABBVIE-16P-020-1639892-00

PATIENT
  Age: 34 Year
  Sex: Male
  Weight: 80 kg

DRUGS (2)
  1. ALLOPURINOL. [Concomitant]
     Active Substance: ALLOPURINOL
     Indication: BLOOD URIC ACID
     Route: 048
     Dates: start: 201509
  2. SYNTHROID [Suspect]
     Active Substance: LEVOTHYROXINE SODIUM
     Indication: HYPOTHYROIDISM
     Dosage: 50 MCG (IN THE MORNING - FASTING)
     Route: 048
     Dates: start: 20150917

REACTIONS (1)
  - Ligament disorder [Unknown]

NARRATIVE: CASE EVENT DATE: 20160519
